FAERS Safety Report 17458562 (Version 1)
Quarter: 2020Q1

REPORT INFORMATION
  Report Type: Spontaneous
  Country: US (occurrence: US)
  Receive Date: 20200212
  Receipt Date: 20200212
  Transmission Date: 20200409
  Serious: Yes (Death)
  Sender: FDA-Public Use
  Company Number: None

PATIENT
  Age: 60 Year
  Sex: Female

DRUGS (11)
  1. ZOFRAN [Concomitant]
     Active Substance: ONDANSETRON HYDROCHLORIDE
  2. CAPECITABINE 500MG TAB [Suspect]
     Active Substance: CAPECITABINE
     Indication: CARCINOID TUMOUR
     Dates: start: 20200116
  3. SYNTHROID [Concomitant]
     Active Substance: LEVOTHYROXINE SODIUM
  4. CALCIUM [Concomitant]
     Active Substance: CALCIUM
  5. KEFLEX [Concomitant]
     Active Substance: CEPHALEXIN
  6. HYDROCODONE [Concomitant]
     Active Substance: HYDROCODONE
  7. VITAMIN D [Concomitant]
     Active Substance: VITAMIN D NOS
  8. CARVEDILOL. [Concomitant]
     Active Substance: CARVEDILOL
  9. MAGNESIUM [Concomitant]
     Active Substance: MAGNESIUM
  10. CLARITIN [Concomitant]
     Active Substance: LORATADINE
  11. PROCHLORPER [Concomitant]

REACTIONS (1)
  - Death [None]
